FAERS Safety Report 23224084 (Version 1)
Quarter: 2023Q4

REPORT INFORMATION
  Report Type: Spontaneous
  Country: US (occurrence: US)
  Receive Date: 20231124
  Receipt Date: 20231124
  Transmission Date: 20240110
  Serious: Yes (Other)
  Sender: FDA-Public Use
  Company Number: US-drreddys-SPO/USA/23/0186984

PATIENT
  Age: 4 Decade
  Sex: Female

DRUGS (4)
  1. ZOLEDRONIC ACID [Suspect]
     Active Substance: ZOLEDRONIC ACID
     Indication: Breast cancer stage IV
     Dates: start: 201906, end: 202103
  2. TAMOXIFEN [Concomitant]
     Active Substance: TAMOXIFEN
     Indication: Breast cancer stage IV
     Dates: start: 201906
  3. PERTUZUMAB [Concomitant]
     Active Substance: PERTUZUMAB
     Indication: Breast cancer stage IV
     Dates: start: 201906
  4. TRASTUZUMAB [Concomitant]
     Active Substance: TRASTUZUMAB
     Indication: Breast cancer stage IV
     Dates: start: 201906

REACTIONS (2)
  - Osteonecrosis of jaw [Recovered/Resolved]
  - Product use in unapproved indication [Unknown]
